FAERS Safety Report 9362969 (Version 1)
Quarter: 2013Q2

REPORT INFORMATION
  Report Type: Spontaneous
  Country: US (occurrence: None)
  Receive Date: 20130621
  Receipt Date: 20130621
  Transmission Date: 20140414
  Serious: Yes (Other)
  Sender: FDA-Public Use
  Company Number: None

PATIENT
  Age: 55 Year
  Sex: Female

DRUGS (1)
  1. BU TRANS [Suspect]
     Dosage: BUTRANS PATCH 10MCG, QUIK, CANTENOUS

REACTIONS (3)
  - Dyspnoea [None]
  - Headache [None]
  - Lethargy [None]
